FAERS Safety Report 11213264 (Version 2)
Quarter: 2015Q3

REPORT INFORMATION
  Report Type: Spontaneous
  Country: US (occurrence: US)
  Receive Date: 20150623
  Receipt Date: 20150916
  Transmission Date: 20151125
  Serious: Yes (Hospitalization, Other)
  Sender: FDA-Public Use
  Company Number: US-GLAXOSMITHKLINE-US2015GSK088815

PATIENT
  Sex: Female

DRUGS (19)
  1. MIRTAZAPINE. [Concomitant]
     Active Substance: MIRTAZAPINE
  2. ONDANSETRON [Concomitant]
     Active Substance: ONDANSETRON
  3. EXELON PATCH [Interacting]
     Active Substance: RIVASTIGMINE
     Dosage: 13.3 MG, UNK
     Route: 062
  4. DOXAZOSIN MESYLATE. [Concomitant]
     Active Substance: DOXAZOSIN MESYLATE
  5. ASPIRIN (BABY) [Concomitant]
     Active Substance: ASPIRIN
  6. FLUTICASONE [Concomitant]
     Active Substance: FLUTICASONE\FLUTICASONE PROPIONATE
  7. DIAZEPAM. [Concomitant]
     Active Substance: DIAZEPAM
  8. VITAMIN D [Concomitant]
     Active Substance: CHOLECALCIFEROL
  9. CREON [Concomitant]
     Active Substance: PANCRELIPASE AMYLASE\PANCRELIPASE LIPASE\PANCRELIPASE PROTEASE
  10. DOCUSATE SODIUM. [Concomitant]
     Active Substance: DOCUSATE SODIUM
  11. AMLODIPINE [Concomitant]
     Active Substance: AMLODIPINE BESYLATE
  12. EXELON PATCH [Interacting]
     Active Substance: RIVASTIGMINE
     Indication: DEMENTIA
     Dosage: 9.5MG, UNK
     Route: 062
     Dates: start: 2013
  13. DIPHENHYDRAMINE. [Concomitant]
     Active Substance: DIPHENHYDRAMINE
  14. FENOFIBRATE. [Concomitant]
     Active Substance: FENOFIBRATE
  15. OXYBUTIN [Concomitant]
     Active Substance: OXYBUTYNIN
  16. NICODERM CQ [Suspect]
     Active Substance: NICOTINE
     Indication: SMOKING CESSATION THERAPY
     Dosage: UNK
     Route: 062
     Dates: end: 201409
  17. PROCTOZONE [Concomitant]
     Active Substance: HYDROCORTISONE
  18. OYSTER SHELL CALCIUM [Concomitant]
     Active Substance: CALCIUM
     Indication: PRODUCT USED FOR UNKNOWN INDICATION
     Dosage: UNK
  19. OMEPRAZOLE. [Concomitant]
     Active Substance: OMEPRAZOLE

REACTIONS (8)
  - Dysphonia [Unknown]
  - Eye pruritus [Unknown]
  - Pancreatitis [Recovered/Resolved]
  - Ocular hyperaemia [Unknown]
  - Colitis [Unknown]
  - Abnormal dreams [Unknown]
  - Drug interaction [Unknown]
  - Dry throat [Unknown]
